FAERS Safety Report 21936496 (Version 1)
Quarter: 2023Q1

REPORT INFORMATION
  Report Type: Spontaneous
  Country: US (occurrence: US)
  Receive Date: 20230201
  Receipt Date: 20230201
  Transmission Date: 20230417
  Serious: Yes (Hospitalization)
  Sender: FDA-Public Use
  Company Number: US-VIRTUS PHARMACEUTICALS, LLC-2023VTS00003

PATIENT
  Sex: Male

DRUGS (6)
  1. ALBUTEROL [Suspect]
     Active Substance: ALBUTEROL
     Indication: Status asthmaticus
     Dosage: UNSPECIFIED TREATMENT IN LOCAL ER
  2. ALBUTEROL [Suspect]
     Active Substance: ALBUTEROL
     Dosage: 20 MG/HOUR; PEDIATRIC ER
  3. UNSPECIFIED INGREDIENT [Suspect]
     Active Substance: UNSPECIFIED INGREDIENT
     Dosage: 3 LITERS OVER SEVERAL HOURS; IN PEDIATRIC ER
  4. UNSPECIFIED INGREDIENT [Concomitant]
     Active Substance: UNSPECIFIED INGREDIENT
     Dosage: UNK IN LOCAL ER
  5. MAGNESIUM SULFATE [Concomitant]
     Active Substance: MAGNESIUM SULFATE
     Dosage: UNK IN LOCAL ER
  6. UNSPECIFIED FLUID [Concomitant]
     Dosage: 2 LITERS IN LOCAL ER

REACTIONS (5)
  - Tachycardia [Unknown]
  - Left ventricular dysfunction [Unknown]
  - Acute pulmonary oedema [Unknown]
  - Respiratory failure [Unknown]
  - Shock [Unknown]
